FAERS Safety Report 8507825-1 (Version None)
Quarter: 2012Q3

REPORT INFORMATION
  Report Type: 
  Country: None (occurrence: None)
  Receive Date: 20120713
  Receipt Date: 20120710
  Transmission Date: 20120928
  Serious: Yes (Death, Other)
  Sender: FDA-Public Use
  Company Number: PHEH2012US011459

PATIENT
  Sex: Male

DRUGS (1)
  1. MYFORTIC [Suspect]
     Dosage: 180 MG, BID
     Route: 048

REACTIONS (3)
  - OBLITERATIVE BRONCHIOLITIS [None]
  - RENAL DISORDER [None]
  - CHRONIC RESPIRATORY FAILURE [None]
